FAERS Safety Report 10457005 (Version 2)
Quarter: 2014Q3

REPORT INFORMATION
  Report Type: Report from Study
  Country: CA (occurrence: CA)
  Receive Date: 20140916
  Receipt Date: 20140916
  Transmission Date: 20150326
  Serious: Yes (Death)
  Sender: FDA-Public Use
  Company Number: PHHY2013CA043049

PATIENT
  Age: 54 Year
  Sex: Female

DRUGS (1)
  1. ZOMETA [Suspect]
     Active Substance: ZOLEDRONIC ACID
     Indication: LUNG NEOPLASM MALIGNANT
     Dosage: 04 MG, EVERY 4 WEEKS
     Route: 042
     Dates: start: 20130227

REACTIONS (2)
  - Body temperature decreased [Unknown]
  - Death [Fatal]

NARRATIVE: CASE EVENT DATE: 20130424
